FAERS Safety Report 16458868 (Version 2)
Quarter: 2019Q3

REPORT INFORMATION
  Report Type: Spontaneous
  Country: US (occurrence: US)
  Receive Date: 20190620
  Receipt Date: 20190925
  Transmission Date: 20191004
  Serious: No
  Sender: FDA-Public Use
  Company Number: US-THERAPEUTICSMD-2019TMD01044

PATIENT
  Age: 59 Year
  Sex: Female
  Weight: 63.49 kg

DRUGS (4)
  1. IRON [Concomitant]
     Active Substance: IRON
     Dosage: UNK, 2X/WEEK
  2. IMVEXXY [Suspect]
     Active Substance: ESTRADIOL
     Indication: HORMONE REPLACEMENT THERAPY
     Dosage: 10 ?G, 2X/WEEK ON MONDAYS AND THURSDAYS BEFORE BED
     Route: 067
     Dates: start: 2019, end: 20190412
  3. CALCIUM WITH VITAMIN D AND MAGNESIUM [Concomitant]
     Dosage: UNK, 3X/WEEK
  4. OCUVITE [Concomitant]
     Active Substance: VITAMINS
     Dosage: UNK, 2X/WEEK

REACTIONS (5)
  - Sensory disturbance [Recovered/Resolved]
  - Varicose vein [Unknown]
  - Muscle spasms [Recovered/Resolved]
  - Gait disturbance [Recovered/Resolved]
  - Off label use [Recovered/Resolved]

NARRATIVE: CASE EVENT DATE: 2019
